FAERS Safety Report 10089560 (Version 3)
Quarter: 2014Q2

REPORT INFORMATION
  Report Type: Spontaneous
  Country: JP (occurrence: JP)
  Receive Date: 20140421
  Receipt Date: 20140512
  Transmission Date: 20141212
  Serious: Yes (Hospitalization, Other)
  Sender: FDA-Public Use
  Company Number: PHHY2014JP047876

PATIENT
  Age: 79 Year
  Sex: Male

DRUGS (8)
  1. VALSARTAN [Suspect]
     Indication: HYPERTENSION
     Dosage: 40 MG, UNK
     Route: 048
  2. WARFARIN [Suspect]
     Indication: ANTICOAGULANT THERAPY
     Dosage: 3.5 MG, UNK
  3. PROPRANOLOL [Suspect]
  4. FLECAINIDE [Suspect]
     Indication: ATRIAL FIBRILLATION
     Dosage: 100 MG, UNK
  5. DABIGATRAN [Suspect]
     Indication: ANTICOAGULANT THERAPY
     Dosage: 220 MG (DIVIDED INTO TWO)
  6. CIBENZOLINE SUCCINATE [Suspect]
     Dosage: 300 MG, UNK
  7. INDERAL [Suspect]
     Dosage: 30 MG, UNK
  8. APRINDINE [Suspect]

REACTIONS (10)
  - Cardiac failure [Unknown]
  - Swelling face [Unknown]
  - Dyspnoea [Unknown]
  - Atrial fibrillation [Recovered/Resolved]
  - Embolic cerebral infarction [Unknown]
  - Cerebral artery embolism [Unknown]
  - Haematochezia [Unknown]
  - Gingival bleeding [Unknown]
  - Prothrombin time ratio decreased [Unknown]
  - Therapeutic response decreased [Unknown]
